FAERS Safety Report 6641537-4 (Version None)
Quarter: 2010Q1

REPORT INFORMATION
  Report Type: 
  Country: None (occurrence: None)
  Receive Date: 20100317
  Receipt Date: 20100317
  Transmission Date: 20100710
  Serious: Yes (Other)
  Sender: FDA-Public Use
  Company Number: None

PATIENT
  Age: 81 Year
  Sex: Male
  Weight: 80 kg

DRUGS (9)
  1. HUMULIN 70/30 [Suspect]
     Indication: TYPE 1 DIABETES MELLITUS
     Dosage: 40 UNITS/20 UNITS 9AM/9PM SQM, OUTPATIENT DOSE
     Route: 058
  2. VALSARTAN [Concomitant]
  3. ASPIRIN [Concomitant]
  4. LEVOTHYROXINE SODIUM [Concomitant]
  5. HUMULIN 70/30 [Concomitant]
  6. FERROUS SULFATE TAB [Concomitant]
  7. LABETALOL HCL [Concomitant]
  8. LOVASTATIN [Concomitant]
  9. FUROSEMIDE [Concomitant]

REACTIONS (3)
  - BLOOD GLUCOSE INCREASED [None]
  - HYPOGLYCAEMIA [None]
  - MENTAL STATUS CHANGES [None]
